FAERS Safety Report 18865603 (Version 2)
Quarter: 2021Q1

REPORT INFORMATION
  Report Type: Not Available
  Country: US (occurrence: US)
  Receive Date: 20210208
  Receipt Date: 20210310
  Transmission Date: 20210420
  Serious: No
  Sender: FDA-Public Use
  Company Number: US-NEUROCRINE BIOSCIENCES INC.-2021NBI00361

PATIENT
  Age: 48 Year
  Sex: Male

DRUGS (1)
  1. INGREZZA [Suspect]
     Active Substance: VALBENAZINE
     Indication: TARDIVE DYSKINESIA
     Route: 048
     Dates: start: 20200807

REACTIONS (3)
  - Drug ineffective [Unknown]
  - Lethargy [Not Recovered/Not Resolved]
  - Tardive dyskinesia [Not Recovered/Not Resolved]
